FAERS Safety Report 9486995 (Version 2)
Quarter: 2013Q3

REPORT INFORMATION
  Report Type: Report from Study
  Country: US (occurrence: US)
  Receive Date: 20130829
  Receipt Date: 20130912
  Transmission Date: 20140515
  Serious: Yes (Hospitalization)
  Sender: FDA-Public Use
  Company Number: US-ROCHE-1266847

PATIENT
  Age: 54 Year
  Sex: Female
  Weight: 78.5 kg

DRUGS (2)
  1. TRASTUZUMAB [Suspect]
     Indication: METASTASES TO MENINGES
     Dosage: CYCLE 1, RECEIVED LAST THERAPY WITH TRASTUZUMAB ON 15/AUG/2013
     Route: 037
     Dates: start: 20130709
  2. TRASTUZUMAB [Suspect]
     Dosage: CYCLE 2
     Route: 037
     Dates: start: 20130808, end: 20130815

REACTIONS (3)
  - Muscular weakness [Unknown]
  - Muscular weakness [Unknown]
  - Gait disturbance [Unknown]
